FAERS Safety Report 10768659 (Version 2)
Quarter: 2015Q2

REPORT INFORMATION
  Report Type: Spontaneous
  Country: DE (occurrence: None)
  Receive Date: 20150204
  Receipt Date: 20150423
  Transmission Date: 20150821
  Serious: Yes (Other)
  Sender: FDA-Public Use
  Company Number: FK201500543

PATIENT
  Age: 67 Year
  Sex: Female
  Weight: 69 kg

DRUGS (1)
  1. CARBOPLATIN INJECTION 10MG/ML (CARBOPLATIN USP) (CARBOPLATIN USP) [Suspect]
     Active Substance: CARBOPLATIN
     Indication: PRODUCT USED FOR UNKNOWN INDICATION
     Dates: start: 20150112, end: 20150112

REACTIONS (3)
  - Pharyngeal oedema [None]
  - Erythema [None]
  - Burning sensation [None]

NARRATIVE: CASE EVENT DATE: 20150112
